FAERS Safety Report 12336529 (Version 2)
Quarter: 2016Q3

REPORT INFORMATION
  Report Type: Report from Study
  Country: US (occurrence: US)
  Receive Date: 20160505
  Receipt Date: 20160726
  Transmission Date: 20161109
  Serious: Yes (Hospitalization)
  Sender: FDA-Public Use
  Company Number: US-EISAI MEDICAL RESEARCH-EC-2016-013610

PATIENT
  Age: 73 Year
  Sex: Female
  Weight: 69.4 kg

DRUGS (12)
  1. LENVIMA [Suspect]
     Active Substance: LENVATINIB
     Dosage: ALTERNATING: 14 MG/DAY FOR 2 WEEKS, THEN 20 MG/DAY FOR 2 WEEKS
     Route: 048
     Dates: start: 20160127, end: 20160420
  2. TIMOLOL MALEATE DROPS [Concomitant]
  3. LENVIMA [Suspect]
     Active Substance: LENVATINIB
     Route: 048
     Dates: start: 20151202, end: 201601
  4. LENVIMA [Suspect]
     Active Substance: LENVATINIB
     Route: 048
     Dates: start: 2016
  5. AMLODIPINE BESILATE [Concomitant]
     Active Substance: AMLODIPINE BESYLATE
  6. SYNTHROID [Concomitant]
     Active Substance: LEVOTHYROXINE SODIUM
  7. CLOBETASOL EMOLLIENT [Concomitant]
  8. LENVIMA [Suspect]
     Active Substance: LENVATINIB
     Route: 048
     Dates: start: 20160428, end: 2016
  9. CALCIUM AND D [Concomitant]
  10. LENVIMA [Suspect]
     Active Substance: LENVATINIB
     Indication: THYROID CANCER
     Route: 048
     Dates: start: 20151113, end: 201511
  11. LENVIMA [Suspect]
     Active Substance: LENVATINIB
     Route: 048
     Dates: start: 2016, end: 20160520
  12. UREA. [Concomitant]
     Active Substance: UREA

REACTIONS (8)
  - Flatulence [Unknown]
  - Palmar-plantar erythrodysaesthesia syndrome [Recovering/Resolving]
  - Diarrhoea [Unknown]
  - Hypertension [Recovered/Resolved]
  - Metastases to central nervous system [Unknown]
  - Nausea [Unknown]
  - Confusional state [Unknown]
  - Blood pressure increased [Unknown]

NARRATIVE: CASE EVENT DATE: 2016
